FAERS Safety Report 6296530-0 (Version None)
Quarter: 2009Q3

REPORT INFORMATION
  Report Type: 
  Country: None (occurrence: None)
  Receive Date: 20090804
  Receipt Date: 20090728
  Transmission Date: 20100115
  Serious: Yes (Other)
  Sender: FDA-Public Use
  Company Number: B0585953A

PATIENT
  Age: 34 Year
  Sex: Male
  Weight: 76.36 kg

DRUGS (2)
  1. ZYBAN [Suspect]
     Indication: SMOKING CESSATION THERAPY
     Dosage: 150MG PER DAY
     Dates: start: 20090625
  2. ZYBAN [Suspect]
     Dosage: 300MG PER DAY
     Dates: end: 20090706

REACTIONS (5)
  - AGGRESSION [None]
  - AGITATION [None]
  - AMNESIA [None]
  - ANXIETY [None]
  - INSOMNIA [None]
